FAERS Safety Report 9630597 (Version 1)
Quarter: 2013Q4

REPORT INFORMATION
  Report Type: Spontaneous
  Country: US (occurrence: US)
  Receive Date: 20131018
  Receipt Date: 20131018
  Transmission Date: 20140711
  Serious: Yes (Other)
  Sender: FDA-Public Use
  Company Number: US-009507513-1310USA004690

PATIENT
  Age: 27 Year
  Sex: Female
  Weight: 51.25 kg

DRUGS (1)
  1. NEXPLANON [Suspect]
     Indication: CONTRACEPTION
     Dosage: 68 MG, FREQUENCY NOT REPORTED
     Route: 059
     Dates: start: 20130508

REACTIONS (5)
  - Hearing impaired [Recovered/Resolved]
  - Blepharospasm [Not Recovered/Not Resolved]
  - Menorrhagia [Not Recovered/Not Resolved]
  - Muscle twitching [Not Recovered/Not Resolved]
  - Menstruation irregular [Not Recovered/Not Resolved]
